FAERS Safety Report 5854792-5 (Version None)
Quarter: 2008Q3

REPORT INFORMATION
  Report Type: 
  Country: None (occurrence: None)
  Receive Date: 20080822
  Receipt Date: 20080815
  Transmission Date: 20090109
  Serious: Yes (Death)
  Sender: FDA-Public Use
  Company Number: US-GENENTECH-266451

PATIENT

DRUGS (2)
  1. RITUXAN [Suspect]
     Indication: B-CELL LYMPHOMA
     Route: 042
  2. ANTICOAGULANT THERAPY [Concomitant]
     Indication: PULMONARY EMBOLISM

REACTIONS (1)
  - SUBDURAL HAEMATOMA [None]
